FAERS Safety Report 6265468-7 (Version None)
Quarter: 2009Q3

REPORT INFORMATION
  Report Type: 
  Country: None (occurrence: None)
  Receive Date: 20090713
  Receipt Date: 20090703
  Transmission Date: 20100115
  Serious: Yes (Hospitalization)
  Sender: FDA-Public Use
  Company Number: DK-ASTRAZENECA-2009SE04423

PATIENT
  Age: 24869 Day
  Sex: Male
  Weight: 110 kg

DRUGS (2)
  1. CRESTOR [Suspect]
     Indication: HYPERCHOLESTEROLAEMIA
     Route: 048
     Dates: start: 20090618, end: 20090621
  2. IMDUR [Concomitant]
     Indication: CHEST PAIN
     Route: 048
     Dates: start: 20090618, end: 20090621

REACTIONS (2)
  - DYSPNOEA [None]
  - RASH MORBILLIFORM [None]
